FAERS Safety Report 23904830 (Version 1)
Quarter: 2024Q2

REPORT INFORMATION
  Report Type: Spontaneous
  Country: AU (occurrence: AU)
  Receive Date: 20240527
  Receipt Date: 20240527
  Transmission Date: 20240715
  Serious: Yes (Other)
  Sender: FDA-Public Use
  Company Number: AU-TEVA-VS-3201629

PATIENT
  Age: 45 Year
  Sex: Male

DRUGS (21)
  1. ESOMEPRAZOLE [Suspect]
     Active Substance: ESOMEPRAZOLE
     Route: 065
  2. DOCUSATE SODIUM\SENNOSIDES A AND B [Suspect]
     Active Substance: DOCUSATE SODIUM\SENNOSIDES A AND B
     Route: 065
  3. LEVOTHYROXINE SODIUM [Suspect]
     Active Substance: LEVOTHYROXINE SODIUM
     Route: 065
  4. ATROPINE [Suspect]
     Active Substance: ATROPINE\ATROPINE SULFATE
     Route: 065
  5. CHROMIUM PICOLINATE [Suspect]
     Active Substance: CHROMIUM PICOLINATE
     Route: 065
  6. CHOLECALCIFEROL [Suspect]
     Active Substance: CHOLECALCIFEROL
     Route: 065
  7. LITHIUM [Suspect]
     Active Substance: LITHIUM
     Route: 065
  8. LORAZEPAM [Suspect]
     Active Substance: LORAZEPAM
     Route: 065
  9. METFORMIN HYDROCHLORIDE [Suspect]
     Active Substance: METFORMIN HYDROCHLORIDE
     Route: 065
  10. ACETAMINOPHEN [Suspect]
     Active Substance: ACETAMINOPHEN
     Route: 065
  11. PREGABALIN [Suspect]
     Active Substance: PREGABALIN
     Route: 065
  12. PROPRANOLOL HYDROCHLORIDE [Suspect]
     Active Substance: PROPRANOLOL HYDROCHLORIDE
     Route: 065
  13. VALPROIC ACID [Suspect]
     Active Substance: VALPROIC ACID
     Route: 065
  14. ATORVASTATIN [Suspect]
     Active Substance: ATORVASTATIN
     Route: 065
  15. ALBUTEROL [Suspect]
     Active Substance: ALBUTEROL
     Route: 065
  16. SUMATRIPTAN [Suspect]
     Active Substance: SUMATRIPTAN
     Route: 065
  17. ALPRAZOLAM [Suspect]
     Active Substance: ALPRAZOLAM
     Route: 065
  18. ESCITALOPRAM OXALATE [Suspect]
     Active Substance: ESCITALOPRAM OXALATE
     Route: 065
  19. OXYCODONE [Suspect]
     Active Substance: OXYCODONE\OXYCODONE HYDROCHLORIDE
     Route: 065
  20. TOPIRAMATE [Suspect]
     Active Substance: TOPIRAMATE
     Route: 065
  21. CLOZAPINE [Suspect]
     Active Substance: CLOZAPINE
     Route: 065

REACTIONS (6)
  - Acute kidney injury [Unknown]
  - Metabolic acidosis [Unknown]
  - Neuroleptic malignant syndrome [Unknown]
  - Rhabdomyolysis [Unknown]
  - Skin ulcer [Unknown]
  - Iron deficiency [Unknown]
